FAERS Safety Report 11127276 (Version 2)
Quarter: 2015Q2

REPORT INFORMATION
  Report Type: Report from Study
  Country: TR (occurrence: TR)
  Receive Date: 20150521
  Receipt Date: 20150529
  Transmission Date: 20150821
  Serious: Yes (Death)
  Sender: FDA-Public Use
  Company Number: TR-ROCHE-1581354

PATIENT

DRUGS (1)
  1. ALTEPLASE [Suspect]
     Active Substance: ALTEPLASE
     Indication: PULMONARY EMBOLISM
     Dosage: MEAN DOSE OF 44 PATIENTS: 24.1 +/- 11.4 MG
     Route: 065

REACTIONS (1)
  - Death [Fatal]
